FAERS Safety Report 15116790 (Version 2)
Quarter: 2019Q1

REPORT INFORMATION
  Report Type: Spontaneous
  Country: ES (occurrence: ES)
  Receive Date: 20180706
  Receipt Date: 20190131
  Transmission Date: 20190417
  Serious: Yes (Death, Other)
  Sender: FDA-Public Use
  Company Number: ES-BAYER-2018-126615

PATIENT
  Age: 50 Year
  Sex: Male

DRUGS (2)
  1. DOXORUBICIN [Concomitant]
     Active Substance: DOXORUBICIN
     Dosage: 20 MG/M2 PER WEEK)
  2. NEXAVAR [Suspect]
     Active Substance: SORAFENIB
     Indication: THYROID CANCER

REACTIONS (7)
  - Renal failure [Recovering/Resolving]
  - Oesophagitis [Recovering/Resolving]
  - Metastases to lung [Fatal]
  - Hypocalcaemia [Recovering/Resolving]
  - Mucosal inflammation [Recovering/Resolving]
  - Drug effect incomplete [None]
  - Anaemia [Recovering/Resolving]
